FAERS Safety Report 21576828 (Version 2)
Quarter: 2022Q4

REPORT INFORMATION
  Report Type: Spontaneous
  Country: AU (occurrence: AU)
  Receive Date: 20221110
  Receipt Date: 20221207
  Transmission Date: 20230113
  Serious: Yes (Death)
  Sender: FDA-Public Use
  Company Number: AU-TERSERA THERAPEUTICS LLC-2022TRS004880

PATIENT

DRUGS (1)
  1. XERMELO [Suspect]
     Active Substance: TELOTRISTAT ETHYL
     Indication: Product used for unknown indication
     Dosage: 250 MG, TID (TDS)
     Route: 048
     Dates: end: 202210

REACTIONS (1)
  - Disease progression [Fatal]
